FAERS Safety Report 10667973 (Version 1)
Quarter: 2014Q4

REPORT INFORMATION
  Report Type: Spontaneous
  Country: US (occurrence: None)
  Receive Date: 20141219
  Receipt Date: 20141219
  Transmission Date: 20150529
  Serious: Yes (Hospitalization)
  Sender: FDA-Public Use
  Company Number: None

PATIENT
  Age: 71 Year
  Sex: Female
  Weight: 89 kg

DRUGS (3)
  1. CISPLATIN. [Suspect]
     Active Substance: CISPLATIN
     Dates: end: 20121206
  2. TAXOL [Suspect]
     Active Substance: PACLITAXEL
     Dates: end: 20130322
  3. CARBOPLATIN. [Suspect]
     Active Substance: CARBOPLATIN
     Dates: start: 20130322

REACTIONS (4)
  - Pain in extremity [None]
  - Peripheral nerve destruction [None]
  - Abasia [None]
  - Polyneuropathy [None]

NARRATIVE: CASE EVENT DATE: 20130425
